FAERS Safety Report 5638376-X (Version None)
Quarter: 2008Q1

REPORT INFORMATION
  Report Type: 
  Country: None (occurrence: None)
  Receive Date: 20080226
  Receipt Date: 20080220
  Transmission Date: 20080703
  Serious: Yes (Disabling)
  Sender: FDA-Public Use
  Company Number: JP-ASTRAZENECA-2008AP01318

PATIENT
  Age: 70 Year
  Sex: Male

DRUGS (2)
  1. MARCAINE HYDROCHLORIDE PRESERVATIVE FREE [Suspect]
     Indication: SPINAL ANAESTHESIA
     Route: 037
  2. ANAPEINE INJECTION [Suspect]
     Indication: EPIDURAL ANAESTHESIA
     Dosage: DOSE UNKNOWN, 2 ML/H
     Route: 008

REACTIONS (1)
  - BLADDER DISORDER [None]
